FAERS Safety Report 7089331-7 (Version None)
Quarter: 2010Q4

REPORT INFORMATION
  Report Type: 
  Country: None (occurrence: None)
  Receive Date: 20101108
  Receipt Date: 20101101
  Transmission Date: 20110411
  Serious: Yes (Hospitalization, Other)
  Sender: FDA-Public Use
  Company Number: US-ABBOTT-10P-163-0675779-00

PATIENT
  Sex: Female

DRUGS (3)
  1. LUPRON DEPOT [Suspect]
     Indication: UTERINE HAEMORRHAGE
  2. TRANEXAMIC ACID [Suspect]
     Indication: UTERINE HAEMORRHAGE
     Dosage: 650MG X 2 TID, 3 TIMES DAILY
  3. LOESTRIN 24 FE [Suspect]
     Indication: UTERINE HAEMORRHAGE
     Dosage: 2 PILLS DAILY

REACTIONS (8)
  - ANAEMIA [None]
  - ANAEMIA OF CHRONIC DISEASE [None]
  - DISORIENTATION [None]
  - HAEMATOCRIT DECREASED [None]
  - ISCHAEMIC STROKE [None]
  - LETHARGY [None]
  - UTERINE LEIOMYOMA [None]
  - VAGINAL HAEMORRHAGE [None]
